FAERS Safety Report 10954125 (Version 3)
Quarter: 2015Q2

REPORT INFORMATION
  Report Type: Spontaneous
  Country: JP (occurrence: JP)
  Receive Date: 20150325
  Receipt Date: 20150506
  Transmission Date: 20150821
  Serious: Yes (Disabling)
  Sender: FDA-Public Use
  Company Number: JP-009507513-1503JPN011476

PATIENT
  Age: 8 Year
  Sex: Male
  Weight: 26.9 kg

DRUGS (6)
  1. METHOTREXATE [Suspect]
     Active Substance: METHOTREXATE
     Indication: ACUTE LYMPHOCYTIC LEUKAEMIA
     Dosage: UNK
     Route: 029
  2. ONCOVIN [Concomitant]
     Active Substance: VINCRISTINE SULFATE
     Indication: LEUKAEMIA RECURRENT PROPHYLAXIS
     Dosage: DAILY DOSE: 2 MG/M2
     Route: 042
     Dates: start: 20120712
  3. METHOTREXATE [Suspect]
     Active Substance: METHOTREXATE
     Indication: LEUKAEMIA RECURRENT PROPHYLAXIS
     Dosage: 30 MG/M2, WEEK 15 CYCLES OF 8 WEEKS PER CYCLE FOR TWO YEARS
     Route: 042
     Dates: start: 20120712
  4. DEXAMETHASONE. [Suspect]
     Active Substance: DEXAMETHASONE
     Indication: LEUKAEMIA RECURRENT PROPHYLAXIS
     Dosage: 6 MG/M2, DAILY DOSE ON DAYS 1-14 FOR TWO YEARS
     Route: 048
     Dates: start: 20120712, end: 20130605
  5. LEUKERIN [Suspect]
     Active Substance: MERCAPTOPURINE
     Indication: LEUKAEMIA RECURRENT PROPHYLAXIS
     Dosage: 50 MG/M2, DAILY DOSE ON DAYS 15 TO 56 FOR TWO YEARS
     Route: 048
     Dates: start: 20130606
  6. PREDONINE [Suspect]
     Active Substance: PREDNISOLONE\PREDNISOLONE ACETATE\PREDNISOLONE SODIUM SUCCINATE
     Indication: ACUTE LYMPHOCYTIC LEUKAEMIA
     Dosage: DAILY DOSE: 40 MG/M2
     Route: 048
     Dates: start: 20130606

REACTIONS (3)
  - Bacterial infection [Recovering/Resolving]
  - Molluscum contagiosum [Recovering/Resolving]
  - Depression [Unknown]

NARRATIVE: CASE EVENT DATE: 20140514
